FAERS Safety Report 4928667-X (Version None)
Quarter: 2006Q1

REPORT INFORMATION
  Report Type: 
  Country: None (occurrence: None)
  Receive Date: 20060227
  Receipt Date: 20060227
  Transmission Date: 20060701
  Serious: Yes (Hospitalization, Other)
  Sender: FDA-Public Use
  Company Number: None

PATIENT
  Sex: Male
  Weight: 87 kg

DRUGS (4)
  1. CYCLOPHOSPHAMIDE [Suspect]
     Indication: DIFFUSE LARGE B-CELL LYMPHOMA
     Dosage: 1508 MG
     Dates: start: 20060131, end: 20060131
  2. DOXIL [Suspect]
     Dosage: 80 MG
     Dates: start: 20060131, end: 20060131
  3. PREDNISONE [Suspect]
     Dosage: 80 MG
     Dates: start: 20060131, end: 20060204
  4. RITUXIMAB MOAB C2B8 [Suspect]
     Dosage: 754 MG
     Dates: start: 20060131, end: 20060131

REACTIONS (6)
  - CONDITION AGGRAVATED [None]
  - CONFUSIONAL STATE [None]
  - FEBRILE NEUTROPENIA [None]
  - OSTEOMYELITIS [None]
  - PAIN [None]
  - WOUND DRAINAGE [None]
